FAERS Safety Report 9524417 (Version 3)
Quarter: 2013Q4

REPORT INFORMATION
  Report Type: Spontaneous
  Country: AR (occurrence: AR)
  Receive Date: 20130916
  Receipt Date: 20131202
  Transmission Date: 20140711
  Serious: Yes (Hospitalization, Other)
  Sender: FDA-Public Use
  Company Number: AR-AMGEN-ARGSP2011054278

PATIENT
  Age: 66 Year
  Sex: Female

DRUGS (6)
  1. ENBREL [Suspect]
     Indication: PSORIATIC ARTHROPATHY
     Dosage: 50 MG, WEEKLY
     Route: 058
     Dates: start: 20100416, end: 201106
  2. METHOTREXATE [Concomitant]
     Dosage: UNK
  3. DARISEC [Concomitant]
     Dosage: UNK
  4. ORGESTRIOL [Concomitant]
     Dosage: UNK
  5. PREGABALIN [Concomitant]
     Dosage: UNK
  6. TRAMADOL HYDROCHLORIDE [Concomitant]
     Dosage: UNK

REACTIONS (5)
  - Pain [Not Recovered/Not Resolved]
  - Blood creatinine increased [Recovered/Resolved]
  - Urinary tract infection [Recovered/Resolved]
  - Bacteraemia [Recovered/Resolved]
  - Viral infection [Unknown]
